FAERS Safety Report 13980854 (Version 1)
Quarter: 2017Q3

REPORT INFORMATION
  Report Type: Spontaneous
  Country: US (occurrence: US)
  Receive Date: 20170918
  Receipt Date: 20170918
  Transmission Date: 20171128
  Serious: Yes (Other)
  Sender: FDA-Public Use
  Company Number: US-ZYDUS-016597

PATIENT
  Age: 42 Year
  Sex: Male

DRUGS (1)
  1. DOXYCYCLINE. [Suspect]
     Active Substance: DOXYCYCLINE
     Indication: RASH
     Route: 065

REACTIONS (5)
  - Fatigue [Unknown]
  - Aplastic anaemia [Unknown]
  - Epistaxis [Unknown]
  - Pancytopenia [Unknown]
  - Bone marrow failure [Unknown]
